FAERS Safety Report 5489220-5 (Version None)
Quarter: 2007Q4

REPORT INFORMATION
  Report Type: 
  Country: None (occurrence: None)
  Receive Date: 20071018
  Receipt Date: 20071012
  Transmission Date: 20080405
  Serious: Yes (Other)
  Sender: FDA-Public Use
  Company Number: BE-BAYER-200716077GDS

PATIENT
  Age: 17 Year
  Sex: Female

DRUGS (1)
  1. AVELOX [Suspect]
     Indication: LEGIONELLA INFECTION
     Route: 048
     Dates: start: 20071008

REACTIONS (1)
  - LEGIONELLA INFECTION [None]
